FAERS Safety Report 5675800-0 (Version None)
Quarter: 2008Q1

REPORT INFORMATION
  Report Type: 
  Country: None (occurrence: None)
  Receive Date: 20080321
  Receipt Date: 20080321
  Transmission Date: 20080703
  Serious: Yes (Disabling)
  Sender: FDA-Public Use
  Company Number: None

PATIENT
  Age: 69 Year
  Sex: Female
  Weight: 63.5036 kg

DRUGS (1)
  1. HEPARIN [Suspect]
     Indication: ANEURYSM REPAIR
     Dosage: LARGE DURING SURGERY

REACTIONS (5)
  - DRUG HYPERSENSITIVITY [None]
  - LEG AMPUTATION [None]
  - POST PROCEDURAL COMPLICATION [None]
  - SEDATION [None]
  - SKIN DISCOLOURATION [None]
